FAERS Safety Report 6873646-9 (Version None)
Quarter: 2010Q3

REPORT INFORMATION
  Report Type: 
  Country: None (occurrence: None)
  Receive Date: 20100723
  Receipt Date: 20090403
  Transmission Date: 20110219
  Serious: No
  Sender: FDA-Public Use
  Company Number: US-PFIZER INC-2009171959

PATIENT
  Sex: Male
  Weight: 81.646 kg

DRUGS (1)
  1. CHANTIX [Suspect]
     Dosage: 0.5 MG, 2X/DAY
     Dates: start: 20090213

REACTIONS (2)
  - INSOMNIA [None]
  - THINKING ABNORMAL [None]
